FAERS Safety Report 15273196 (Version 1)
Quarter: 2018Q4

REPORT INFORMATION
  Report Type: Report from Study
  Country: CA (occurrence: CA)
  Receive Date: 20180813
  Receipt Date: 20180813
  Transmission Date: 20190204
  Serious: Yes (Other)
  Sender: FDA-Public Use
  Company Number: CA-RECRO GAINESVILLE LLC-REPH-2018-000054

PATIENT
  Sex: Female

DRUGS (1)
  1. VERAPAMIL HYDROCHLORIDE SUSTAINED RELEASE [Suspect]
     Active Substance: VERAPAMIL HYDROCHLORIDE
     Indication: OFF LABEL USE
     Dosage: 5 MG, ONE TIME DOSE
     Route: 050

REACTIONS (2)
  - Off label use [Unknown]
  - Kidney transplant rejection [Unknown]
